FAERS Safety Report 7129193-2 (Version None)
Quarter: 2010Q4

REPORT INFORMATION
  Report Type: 
  Country: None (occurrence: None)
  Receive Date: 20101130
  Receipt Date: 20101123
  Transmission Date: 20110411
  Serious: Yes (Hospitalization)
  Sender: FDA-Public Use
  Company Number: DE-MERCK-1007DEU00106

PATIENT
  Age: 79 Year
  Sex: Female

DRUGS (6)
  1. JANUMET [Suspect]
     Indication: TYPE 2 DIABETES MELLITUS
     Route: 048
     Dates: start: 20100626, end: 20100706
  2. INSULIN, BIPHASIC ISOPHANE [INJECTION] [Concomitant]
     Indication: TYPE 2 DIABETES MELLITUS
     Route: 051
  3. ENOXAPARIN SODIUM [Concomitant]
     Route: 065
  4. RISPERIDONE [Concomitant]
     Indication: DEMENTIA
     Route: 048
  5. POLYETHYLENE GLYCOL [Concomitant]
     Route: 065
  6. DONEPEZIL HYDROCHLORIDE [Suspect]
     Route: 048
     Dates: start: 20100101, end: 20100701

REACTIONS (3)
  - BLISTER [None]
  - RASH [None]
  - ULCER [None]
